FAERS Safety Report 20121675 (Version 3)
Quarter: 2023Q2

REPORT INFORMATION
  Report Type: Spontaneous
  Country: US (occurrence: US)
  Receive Date: 20211128
  Receipt Date: 20230501
  Transmission Date: 20230722
  Serious: No
  Sender: FDA-Public Use
  Company Number: US-AMGEN-USASP2021187114

PATIENT
  Age: 63 Year
  Sex: Female

DRUGS (30)
  1. OTEZLA [Suspect]
     Active Substance: APREMILAST
     Indication: Psoriatic arthropathy
     Dosage: 30 MILLIGRAM, BID
     Route: 048
  2. OTEZLA [Suspect]
     Active Substance: APREMILAST
     Dosage: 30 MILLIGRAM, BID
     Route: 048
  3. FREEDOM [Concomitant]
  4. METFORMIN HYDROCHLORIDE [Concomitant]
     Active Substance: METFORMIN HYDROCHLORIDE
  5. ZINC [Concomitant]
     Active Substance: ZINC
  6. OMEPRAZOLE [Concomitant]
     Active Substance: OMEPRAZOLE
  7. ZOFRAN [Concomitant]
     Active Substance: ONDANSETRON HYDROCHLORIDE
  8. PROAIR DIGIHALER [Concomitant]
     Active Substance: ALBUTEROL SULFATE
  9. RIZATRIPTAN BENZOATE [Concomitant]
     Active Substance: RIZATRIPTAN BENZOATE
  10. MENOPAUSE SUPPORT [CIMICIFUGA RACEMOSA;DIOSCOREA VILLOSA] [Concomitant]
  11. SULFASALAZINE [Concomitant]
     Active Substance: SULFASALAZINE
  12. ASPIRIN [Concomitant]
     Active Substance: ASPIRIN
  13. CALCIUM [Concomitant]
     Active Substance: CALCIUM
  14. CALCIPOTRIENE [Concomitant]
     Active Substance: CALCIPOTRIENE
  15. CHOLECALCIFEROL [Concomitant]
     Active Substance: CHOLECALCIFEROL
  16. NAPROXEN [Concomitant]
     Active Substance: NAPROXEN
  17. DICLOFENAC SODIUM [Concomitant]
     Active Substance: DICLOFENAC SODIUM
  18. DOXEPIN HCL [Concomitant]
     Active Substance: DOXEPIN HYDROCHLORIDE
  19. DULOXETINE HYDROCHLORIDE [Concomitant]
     Active Substance: DULOXETINE HYDROCHLORIDE
  20. ESTRING [Concomitant]
     Active Substance: ESTRADIOL
  21. FLUTICASONE PROPIONATE [Concomitant]
     Active Substance: FLUTICASONE PROPIONATE
  22. HUMALOG [Concomitant]
     Active Substance: INSULIN LISPRO
  23. HYDROCODONE [Concomitant]
     Active Substance: HYDROCODONE
  24. PHENYLEPHRINE [Concomitant]
     Active Substance: PHENYLEPHRINE HYDROCHLORIDE
  25. JARDIANCE [Concomitant]
     Active Substance: EMPAGLIFLOZIN
  26. LOSARTAN [Concomitant]
     Active Substance: LOSARTAN
  27. POTASSIUM [Concomitant]
     Active Substance: POTASSIUM
  28. MAGNESIUM [Concomitant]
     Active Substance: MAGNESIUM
  29. MELOXICAM [Concomitant]
     Active Substance: MELOXICAM
  30. MULTI COMPLETE [Concomitant]

REACTIONS (1)
  - Adverse event [Unknown]

NARRATIVE: CASE EVENT DATE: 20211122
